FAERS Safety Report 12823351 (Version 1)
Quarter: 2016Q4

REPORT INFORMATION
  Report Type: Spontaneous
  Country: GR (occurrence: GR)
  Receive Date: 20161007
  Receipt Date: 20161007
  Transmission Date: 20170207
  Serious: Yes (Life-Threatening)
  Sender: FDA-Public Use
  Company Number: GR-SHIONOGI, INC-2016000956

PATIENT
  Age: 26 Year
  Sex: Female

DRUGS (13)
  1. POSACONAZOLE [Suspect]
     Active Substance: POSACONAZOLE
     Indication: SEPSIS
     Dosage: EVERY 5 DAYS
     Route: 048
  2. DAPTOMYCIN. [Concomitant]
     Active Substance: DAPTOMYCIN
     Indication: SEPSIS
     Dosage: UNK
     Route: 065
  3. COLISTIN SULFATE [Concomitant]
     Active Substance: COLISTIN SULFATE
     Indication: SEPSIS
     Dosage: UNK
     Route: 065
  4. VORICONAZOLE. [Suspect]
     Active Substance: VORICONAZOLE
     Indication: SEPSIS
     Dosage: UNK
     Route: 065
  5. COLISTIN SULFATE [Concomitant]
     Active Substance: COLISTIN SULFATE
     Dosage: EVERY 5 DAYS
     Route: 065
  6. IMMUNE GLOBULIN [Concomitant]
     Active Substance: HUMAN IMMUNOGLOBULIN G
     Indication: SEPSIS
     Dosage: EVERY 5 DAYS
     Route: 042
  7. LINEZOLID. [Concomitant]
     Active Substance: LINEZOLID
     Indication: SEPSIS
     Dosage: UNK
     Route: 065
  8. DORIBAX [Suspect]
     Active Substance: DORIPENEM
     Indication: SEPSIS
     Dosage: EVERY 5 DAYS
     Route: 065
  9. CEFAMANDOLE [Concomitant]
     Active Substance: CEFAMANDOLE
     Indication: SEPSIS
     Dosage: UNK
     Route: 065
  10. LIPOSOMAL DOXORUBICIN HCL [Concomitant]
     Active Substance: DOXORUBICIN HYDROCHLORIDE
     Indication: FUNGAL INFECTION
     Dosage: UNK
     Route: 065
  11. TIGECYCLINE. [Concomitant]
     Active Substance: TIGECYCLINE
     Indication: SEPSIS
     Dosage: EVERY 5 DAYS
     Route: 065
  12. MEROPENEM. [Concomitant]
     Active Substance: MEROPENEM
     Indication: SEPSIS
     Dosage: UNK
     Route: 065
  13. AMIKACIN SULFATE. [Concomitant]
     Active Substance: AMIKACIN SULFATE
     Indication: SEPSIS
     Dosage: UNK
     Route: 065

REACTIONS (1)
  - Long QT syndrome [Recovering/Resolving]
